FAERS Safety Report 14695187 (Version 1)
Quarter: 2018Q1

REPORT INFORMATION
  Report Type: Spontaneous
  Country: US (occurrence: US)
  Receive Date: 20180329
  Receipt Date: 20180329
  Transmission Date: 20180509
  Serious: No
  Sender: FDA-Public Use
  Company Number: US-UPSHER-SMITH LABORATORIES, LLC-2017USL00226

PATIENT
  Sex: Female
  Weight: 68.27 kg

DRUGS (1)
  1. PREVALITE [Suspect]
     Active Substance: CHOLESTYRAMINE
     Indication: HYPERCHOLESTEROLAEMIA
     Dosage: 0.5 DOSAGE UNITS, 1X/DAY
     Route: 048
     Dates: start: 201707, end: 2017

REACTIONS (4)
  - Asthenia [Recovered/Resolved]
  - Abdominal distension [Recovered/Resolved]
  - Eye swelling [Recovered/Resolved]
  - Constipation [Recovered/Resolved]

NARRATIVE: CASE EVENT DATE: 2017
